FAERS Safety Report 25124937 (Version 1)
Quarter: 2025Q1

REPORT INFORMATION
  Report Type: Spontaneous
  Country: IT (occurrence: IT)
  Receive Date: 20250326
  Receipt Date: 20250326
  Transmission Date: 20250409
  Serious: Yes (Hospitalization)
  Sender: BAUSCH AND LOMB
  Company Number: None

PATIENT
  Age: 31 Year
  Sex: Female

DRUGS (7)
  1. VENLAFAXINE [Suspect]
     Active Substance: VENLAFAXINE HYDROCHLORIDE
     Indication: Drug abuse
     Route: 048
     Dates: start: 20250301, end: 20250301
  2. LORAZEPAM [Suspect]
     Active Substance: LORAZEPAM
     Indication: Drug abuse
     Route: 048
     Dates: start: 20250301, end: 202503
  3. AZITHROMYCIN DIHYDRATE [Suspect]
     Active Substance: AZITHROMYCIN DIHYDRATE
     Indication: Drug abuse
     Route: 048
     Dates: start: 20250301, end: 20250301
  4. KETOROLAC TROMETHAMINE [Suspect]
     Active Substance: KETOROLAC TROMETHAMINE
     Indication: Drug abuse
     Route: 048
     Dates: start: 20250301, end: 20250301
  5. BROMAZEPAM [Suspect]
     Active Substance: BROMAZEPAM
     Indication: Drug abuse
     Route: 048
  6. LYRICA [Suspect]
     Active Substance: PREGABALIN
     Indication: Drug abuse
     Route: 048
     Dates: start: 20250301, end: 20250301
  7. ACETAMINOPHEN [Suspect]
     Active Substance: ACETAMINOPHEN
     Indication: Drug abuse
     Route: 048
     Dates: start: 20250301, end: 20250301

REACTIONS (3)
  - Drug abuse [Recovering/Resolving]
  - Cognitive disorder [Recovering/Resolving]
  - Mydriasis [Recovering/Resolving]

NARRATIVE: CASE EVENT DATE: 20250302
